FAERS Safety Report 18463285 (Version 1)
Quarter: 2020Q4

REPORT INFORMATION
  Report Type: Spontaneous
  Country: CN (occurrence: CN)
  Receive Date: 20201104
  Receipt Date: 20201104
  Transmission Date: 20210114
  Serious: Yes (Hospitalization, Other)
  Sender: FDA-Public Use
  Company Number: CN-009507513-2010CHN012013

PATIENT
  Age: 99 Year
  Sex: Male
  Weight: 40 kg

DRUGS (1)
  1. TIENAM [Suspect]
     Active Substance: CILASTATIN SODIUM\IMIPENEM
     Indication: INFECTION
     Dosage: 1G, TID, IVGTT
     Route: 041
     Dates: start: 20200913, end: 20200916

REACTIONS (3)
  - Pneumonia [Unknown]
  - Epilepsy [Recovering/Resolving]
  - Chronic obstructive pulmonary disease [Unknown]

NARRATIVE: CASE EVENT DATE: 2020
